FAERS Safety Report 9215175 (Version 4)
Quarter: 2013Q4

REPORT INFORMATION
  Report Type: Report from Study
  Country: JP (occurrence: JP)
  Receive Date: 20130405
  Receipt Date: 20131226
  Transmission Date: 20140711
  Serious: Yes (Other)
  Sender: FDA-Public Use
  Company Number: JP-AMGEN-JPNCT2013023890

PATIENT
  Age: 73 Year
  Sex: Male
  Weight: 65 kg

DRUGS (8)
  1. DENOSUMAB [Suspect]
     Indication: METASTASES TO BONE
     Dosage: 120 MG, UNK
     Route: 058
     Dates: start: 20120417, end: 20121010
  2. ZOMETA [Concomitant]
     Indication: METASTASES TO BONE
     Dosage: 4 MG, QD
     Route: 042
     Dates: start: 20081017, end: 20120303
  3. WARKMIN [Concomitant]
     Dosage: UNK
     Route: 048
     Dates: start: 20111202
  4. LEUPLIN [Concomitant]
     Dosage: UNK
     Route: 065
     Dates: start: 20080918
  5. ODYNE [Concomitant]
     Dosage: UNK
     Route: 065
     Dates: start: 20080918, end: 20090623
  6. BICALUTAMIDE [Concomitant]
     Dosage: UNKNOWN
     Route: 065
     Dates: start: 20090624
  7. FERROMIA [Concomitant]
     Dosage: UNK
     Route: 048
     Dates: start: 20090410
  8. REBAMIPIDE [Concomitant]
     Dosage: UNK
     Route: 048
     Dates: start: 20091021

REACTIONS (1)
  - Osteonecrosis of jaw [Recovered/Resolved]
